FAERS Safety Report 7435753-1 (Version None)
Quarter: 2011Q2

REPORT INFORMATION
  Report Type: 
  Country: None (occurrence: None)
  Receive Date: 20110425
  Receipt Date: 20110418
  Transmission Date: 20111010
  Serious: No
  Sender: FDA-Public Use
  Company Number: US-B.I. PHARMACEUTICALS,INC./RIDGEFIELD-2011-BP-11127BP

PATIENT
  Age: 70 Year
  Sex: Male

DRUGS (5)
  1. GABAPENTIN [Concomitant]
     Indication: FLUID RETENTION
     Route: 048
  2. FUROSEMIDE [Concomitant]
     Indication: FLUID RETENTION
     Route: 048
  3. PRADAXA [Suspect]
     Indication: ATRIAL FIBRILLATION
     Dosage: 300 MG
     Route: 048
     Dates: start: 20110218, end: 20110417
  4. SPIRONOLACTONE [Concomitant]
     Indication: FLUID RETENTION
     Route: 048
  5. LANTUS [Concomitant]
     Indication: PAIN IN EXTREMITY
     Route: 058

REACTIONS (3)
  - PARAESTHESIA [None]
  - EYE DISORDER [None]
  - HEADACHE [None]
